FAERS Safety Report 25255163 (Version 1)
Quarter: 2025Q2

REPORT INFORMATION
  Report Type: Spontaneous
  Country: US (occurrence: US)
  Receive Date: 20250430
  Receipt Date: 20250430
  Transmission Date: 20250716
  Serious: No
  Sender: GLENMARK
  Company Number: US-GLENMARK PHARMACEUTICALS-2024GMK089641

PATIENT

DRUGS (2)
  1. IMIQUIMOD [Suspect]
     Active Substance: IMIQUIMOD
     Indication: Skin lesion
     Route: 065
  2. IMIQUIMOD [Suspect]
     Active Substance: IMIQUIMOD
     Indication: Biopsy

REACTIONS (1)
  - Product use in unapproved indication [Unknown]
